FAERS Safety Report 7590068-6 (Version None)
Quarter: 2011Q3

REPORT INFORMATION
  Report Type: 
  Country: None (occurrence: None)
  Receive Date: 20110705
  Receipt Date: 20110624
  Transmission Date: 20111222
  Serious: Yes (Life-Threatening)
  Sender: FDA-Public Use
  Company Number: B0683412A

PATIENT
  Sex: Male
  Weight: 41.6 kg

DRUGS (84)
  1. METHOTREXATE [Concomitant]
     Indication: IMMUNOSUPPRESSION
     Route: 065
     Dates: start: 20091009, end: 20091009
  2. ZOSYN [Concomitant]
     Dates: start: 20091010, end: 20091012
  3. ULCERLMIN [Concomitant]
     Route: 048
     Dates: start: 20091001, end: 20091022
  4. ADALAT [Concomitant]
     Route: 048
     Dates: start: 20091009, end: 20091018
  5. XYLOCAINE [Concomitant]
     Route: 061
     Dates: start: 20091015, end: 20091022
  6. MONILAC [Concomitant]
     Route: 048
     Dates: start: 20091018, end: 20091020
  7. URSO 250 [Concomitant]
     Route: 048
     Dates: start: 20091001, end: 20091203
  8. GOODMIN [Concomitant]
     Route: 048
     Dates: start: 20091021, end: 20091025
  9. TPN [Concomitant]
     Route: 042
     Dates: start: 20091001, end: 20091018
  10. POTASSIUM CHLORIDE [Concomitant]
     Route: 042
     Dates: start: 20091001, end: 20091006
  11. ATROPINE [Concomitant]
     Dates: start: 20091120, end: 20091214
  12. ZOSYN [Concomitant]
     Dates: start: 20091008, end: 20091012
  13. DIFLUCAN [Concomitant]
     Route: 048
     Dates: start: 20091001, end: 20091015
  14. HACHIAZULE [Concomitant]
     Route: 002
     Dates: start: 20091010, end: 20091030
  15. NEOLAMIN [Concomitant]
     Route: 042
     Dates: start: 20091001, end: 20091018
  16. SODIUM CHLORIDE [Concomitant]
     Dates: start: 20091007, end: 20091018
  17. HANP [Concomitant]
     Dates: start: 20091016, end: 20091021
  18. SOLITA-T NO.3 [Concomitant]
     Route: 042
     Dates: start: 20091023, end: 20091026
  19. MEROPENEM [Concomitant]
     Dosage: 1500MG PER DAY
     Route: 042
     Dates: start: 20091012
  20. THYMOMODULIN [Concomitant]
     Route: 042
     Dates: start: 20091015, end: 20091025
  21. MAGNESIUM SULFATE [Concomitant]
     Route: 048
     Dates: start: 20091001
  22. GRANISETRON [Concomitant]
     Route: 042
     Dates: start: 20091001, end: 20091014
  23. FLUCONAZOLE [Concomitant]
     Route: 042
     Dates: start: 20091003, end: 20091011
  24. VENOGLOBULIN [Concomitant]
     Route: 042
     Dates: start: 20091006, end: 20091020
  25. ANTHROBIN P [Concomitant]
     Route: 042
     Dates: start: 20091006, end: 20091020
  26. ANTHROBIN P [Concomitant]
     Route: 042
     Dates: start: 20091029, end: 20091116
  27. HAPTOGLOBIN [Concomitant]
     Route: 042
     Dates: start: 20091007, end: 20091020
  28. ALBUMIN (HUMAN) [Concomitant]
     Route: 042
     Dates: start: 20091016, end: 20091017
  29. ALKERAN [Suspect]
     Indication: ALLOGENIC BONE MARROW TRANSPLANTATION THERAPY
     Dosage: 68MGM2 PER DAY
     Route: 042
     Dates: start: 20091001, end: 20091003
  30. CYCLOSPORINE [Concomitant]
     Indication: IMMUNOSUPPRESSION
     Route: 065
     Dates: start: 20091011, end: 20100118
  31. METHOTREXATE [Concomitant]
     Route: 042
     Dates: start: 20091014, end: 20091014
  32. FUROSEMIDE [Concomitant]
     Route: 042
     Dates: start: 20091007, end: 20091120
  33. ZOVIRAX [Concomitant]
     Route: 048
     Dates: start: 20091001
  34. SULFAMETHOXAZOLE [Concomitant]
     Route: 048
     Dates: start: 20091009
  35. XYLOCAINE [Concomitant]
     Route: 061
     Dates: start: 20091010, end: 20091030
  36. PETROLATUM [Concomitant]
     Route: 061
     Dates: start: 20091011, end: 20091011
  37. INDOMETHACIN [Concomitant]
     Route: 062
     Dates: start: 20091017, end: 20091017
  38. URSO 250 [Concomitant]
     Route: 048
     Dates: start: 20091001, end: 20091217
  39. PROMAC [Concomitant]
     Route: 048
     Dates: start: 20091201
  40. TPN [Concomitant]
     Route: 048
     Dates: start: 20091101, end: 20091203
  41. VFEND [Concomitant]
     Route: 048
     Dates: start: 20091118
  42. RINDERON-V [Concomitant]
     Route: 061
     Dates: start: 20091209, end: 20091209
  43. VENOGLOBULIN [Concomitant]
     Route: 042
     Dates: start: 20091029, end: 20091117
  44. SULFATE DE MAGNESIUM [Concomitant]
     Dates: start: 20091007, end: 20091018
  45. SANDIMMUNE [Concomitant]
     Route: 042
     Dates: start: 20091007, end: 20091116
  46. SOLDACTONE [Concomitant]
     Route: 042
     Dates: start: 20091017, end: 20091018
  47. VFEND [Concomitant]
     Route: 042
     Dates: start: 20091023, end: 20091026
  48. PREDNISOLONE [Concomitant]
     Dates: start: 20091112
  49. HYALEIN [Concomitant]
     Route: 031
     Dates: start: 20091016, end: 20091016
  50. SLOW-K [Concomitant]
     Route: 048
     Dates: start: 20091020, end: 20091021
  51. ZINC OXIDE [Concomitant]
     Route: 061
     Dates: start: 20091021, end: 20091021
  52. HIRUDOID [Concomitant]
     Route: 061
     Dates: start: 20091215, end: 20091215
  53. HIGH-CALORIE TRANSFUSION FLUID [Concomitant]
     Route: 042
     Dates: start: 20091001, end: 20091006
  54. GLYCEOL [Concomitant]
     Route: 042
     Dates: start: 20091005, end: 20091007
  55. SOLU-CORTEF [Concomitant]
     Dates: start: 20091007, end: 20091008
  56. ALBUMIN (HUMAN) [Concomitant]
     Route: 042
     Dates: start: 20091015, end: 20091015
  57. SOLITA-T [Concomitant]
     Route: 042
     Dates: start: 20091028, end: 20091110
  58. SOLU-MEDROL [Concomitant]
     Route: 042
     Dates: start: 20091106, end: 20091109
  59. RINGER'S SOLUTION [Concomitant]
     Route: 042
     Dates: start: 20091111, end: 20091216
  60. METHOTREXATE [Concomitant]
     Route: 065
     Dates: start: 20091011, end: 20091011
  61. METHYLROSANILINIUM CHLORIDE [Concomitant]
     Route: 061
     Dates: start: 20091015, end: 20091022
  62. NEORAL [Concomitant]
     Route: 048
     Dates: start: 20091201
  63. EBASTINE [Concomitant]
     Route: 048
     Dates: start: 20091122, end: 20091217
  64. FOIPAN [Concomitant]
     Route: 048
     Dates: start: 20091215
  65. FUNGUARD [Concomitant]
     Route: 042
     Dates: start: 20091011, end: 20091026
  66. ZANTAC [Concomitant]
     Dates: start: 20091013, end: 20091216
  67. NITRAZEPAM [Concomitant]
     Dates: start: 20091120, end: 20091214
  68. ACETAMINOPHEN [Concomitant]
     Route: 048
     Dates: start: 20091011, end: 20091020
  69. HEAVY MAGNESIUM OXIDE [Concomitant]
     Route: 048
     Dates: start: 20091201
  70. RELENZA [Concomitant]
     Route: 055
     Dates: start: 20091201, end: 20091210
  71. SOLITA-T [Concomitant]
     Route: 042
     Dates: start: 20091001, end: 20091006
  72. FOY [Concomitant]
     Route: 042
     Dates: start: 20091207, end: 20091214
  73. AMIKACIN SULFATE [Concomitant]
     Dosage: 300MG PER DAY
     Dates: start: 20091012, end: 20091013
  74. TARGOCID [Concomitant]
     Route: 042
     Dates: start: 20091013, end: 20091026
  75. CEFDINIR [Concomitant]
     Route: 048
     Dates: start: 20091001, end: 20091015
  76. FLAVITAN [Concomitant]
     Route: 048
     Dates: start: 20091015, end: 20091022
  77. POTASSIUM CHLORIDE [Concomitant]
     Route: 048
     Dates: start: 20091020, end: 20091022
  78. DIPHENHYDRAMINE HCL [Concomitant]
     Route: 061
     Dates: start: 20091118, end: 20091124
  79. POLARAMINE [Concomitant]
     Route: 048
     Dates: start: 20091120, end: 20091126
  80. FLUTIDE DISKUS [Concomitant]
     Route: 055
     Dates: start: 20091203
  81. PROTEAMIN [Concomitant]
     Route: 042
     Dates: start: 20091001, end: 20091018
  82. FRAGMIN [Concomitant]
     Route: 042
     Dates: start: 20091001, end: 20091006
  83. ZOVIRAX [Concomitant]
     Route: 042
     Dates: start: 20091002, end: 20091030
  84. VEEN F [Concomitant]
     Route: 042
     Dates: start: 20091016, end: 20091017

REACTIONS (7)
  - FEBRILE NEUTROPENIA [None]
  - ASTHMA [None]
  - DISSEMINATED INTRAVASCULAR COAGULATION [None]
  - RESPIRATORY DISORDER [None]
  - HEPATIC VEIN OCCLUSION [None]
  - PULMONARY OEDEMA [None]
  - PERICARDIAL EFFUSION [None]
